FAERS Safety Report 6253551-1 (Version None)
Quarter: 2009Q3

REPORT INFORMATION
  Report Type: 
  Country: None (occurrence: None)
  Receive Date: 20090701
  Receipt Date: 20090630
  Transmission Date: 20100115
  Serious: Yes (Hospitalization, Disabling)
  Sender: FDA-Public Use
  Company Number: US-AMGEN-US352574

PATIENT
  Sex: Male

DRUGS (13)
  1. NPLATE [Suspect]
     Indication: IDIOPATHIC THROMBOCYTOPENIC PURPURA
     Route: 058
     Dates: start: 20081205, end: 20090306
  2. CORTICOSTEROIDS [Concomitant]
     Dates: start: 20081124
  3. IMMUNOGLOBULINS [Concomitant]
     Dates: start: 20081124
  4. RITUXIMAB [Concomitant]
     Dates: start: 20081204
  5. PROGRAF [Concomitant]
     Route: 065
  6. PREDNISONE [Concomitant]
     Route: 065
  7. LANTUS [Concomitant]
     Route: 065
  8. BACTRIM [Concomitant]
     Route: 065
  9. GLIPIZIDE [Concomitant]
     Route: 065
  10. OSCAL [Concomitant]
     Route: 065
  11. POTASSIUM CHLORIDE [Concomitant]
     Route: 065
  12. MAGNESIUM OXIDE [Concomitant]
     Route: 065
  13. PRILOSEC [Concomitant]
     Route: 065

REACTIONS (1)
  - PORTAL VEIN THROMBOSIS [None]
